FAERS Safety Report 24290903 (Version 1)
Quarter: 2024Q3

REPORT INFORMATION
  Report Type: Spontaneous
  Country: US (occurrence: None)
  Receive Date: 20240905
  Receipt Date: 20240905
  Transmission Date: 20241017
  Serious: Yes (Life-Threatening, Hospitalization, Disabling)
  Sender: Public
  Company Number: None

PATIENT
  Age: 74 Year
  Sex: Female
  Weight: 74.84 kg

DRUGS (3)
  1. KEYTRUDA [Suspect]
     Active Substance: PEMBROLIZUMAB
     Indication: Malignant neoplasm progression
  2. KEYTRUDA [Suspect]
     Active Substance: PEMBROLIZUMAB
     Indication: Prophylaxis
  3. TUBE FEEDING [Concomitant]

REACTIONS (9)
  - Nausea [None]
  - Decreased appetite [None]
  - Pain [None]
  - Vomiting [None]
  - Abdominal pain [None]
  - Feeding disorder [None]
  - Fluid intake reduced [None]
  - Dehydration [None]
  - Pancreatitis [None]

NARRATIVE: CASE EVENT DATE: 20240507
